FAERS Safety Report 5621282-4 (Version None)
Quarter: 2008Q1

REPORT INFORMATION
  Report Type: 
  Country: None (occurrence: None)
  Receive Date: 20080211
  Receipt Date: 20080131
  Transmission Date: 20080703
  Serious: Yes (Other)
  Sender: FDA-Public Use
  Company Number: CA-JNJFOC-20080200472

PATIENT
  Age: 66 Year
  Sex: Female

DRUGS (2)
  1. REMICADE [Suspect]
     Indication: COLITIS ULCERATIVE
     Dosage: 4 INFUSIONS
     Route: 042
  2. PREDNISONE TAB [Concomitant]
     Indication: PREMEDICATION
     Route: 048

REACTIONS (9)
  - BLOOD PRESSURE INCREASED [None]
  - CHEST DISCOMFORT [None]
  - COUGH [None]
  - DYSPHONIA [None]
  - DYSPNOEA [None]
  - INFUSION RELATED REACTION [None]
  - PALPITATIONS [None]
  - THROAT IRRITATION [None]
  - THROAT TIGHTNESS [None]
